FAERS Safety Report 8764382 (Version 1)
Quarter: 2012Q4

REPORT INFORMATION
  Report Type: 
  Country: US (occurrence: US)
  Receive Date: 20120831
  Receipt Date: 20120831
  Transmission Date: 20130627
  Serious: Yes (Other)
  Sender: FDA-Public Use
  Company Number: PHHY2012US073514

PATIENT
  Age: 27 Year
  Sex: Male
  Weight: 70 kg

DRUGS (14)
  1. ROCURONIUM BROMIDE [Suspect]
     Dosage: 8 ug/kg/min
  2. PROPOFOL [Concomitant]
  3. PIPERACILLIN SODIUM W/TAZOBACTAM SODIUM [Concomitant]
     Dosage: 4.5 mg every 6 hours
     Route: 042
  4. VANCOMYCIN [Concomitant]
     Dosage: 1 g every 12 hours
     Route: 042
  5. FLUCONAZOLE [Concomitant]
     Dosage: 200 mg every 24 hours
     Route: 042
  6. LORAZEPAM [Concomitant]
  7. FENTANYL [Concomitant]
  8. METHYLPREDNISOLONE [Concomitant]
     Dosage: 40 mg every 8 hours
     Route: 042
  9. INSULIN [Concomitant]
     Indication: BLOOD GLUCOSE
  10. DILTIAZEM HYDROCHLORIDE [Concomitant]
     Dosage: 5 mg/h
     Route: 042
  11. FAMOTIDINE [Concomitant]
     Dosage: 20 mg
     Route: 042
  12. ENOXAPARIN SODIUM [Concomitant]
     Dosage: 40 mg
     Route: 058
  13. ACETAMINOPHEN [Concomitant]
     Dosage: 650 mg via feeding tube every 4 hours
  14. INDOMETHACIN [Concomitant]
     Dosage: 50 mg ia a feeding tube every 12 hours

REACTIONS (5)
  - Hypoxic-ischaemic encephalopathy [Unknown]
  - Hyperthermia malignant [Recovered/Resolved]
  - Blood creatine phosphokinase increased [Unknown]
  - Hypertension [Unknown]
  - Hypernatraemia [Unknown]
